FAERS Safety Report 10553612 (Version 1)
Quarter: 2014Q4

REPORT INFORMATION
  Report Type: Spontaneous
  Country: US (occurrence: US)
  Receive Date: 20141030
  Receipt Date: 20141030
  Transmission Date: 20150529
  Serious: No
  Sender: FDA-Public Use
  Company Number: US-009507513-1410USA015500

PATIENT
  Sex: Male

DRUGS (3)
  1. SINGULAIR [Suspect]
     Active Substance: MONTELUKAST SODIUM
     Dosage: 5 MG, UNK
     Route: 048
     Dates: start: 201406, end: 2014
  2. SINGULAIR [Suspect]
     Active Substance: MONTELUKAST SODIUM
     Dosage: 10 MG, UNK
     Route: 048
     Dates: start: 2014
  3. SINGULAIR [Suspect]
     Active Substance: MONTELUKAST SODIUM
     Dosage: 4 UNK, UNK
     Route: 048
     Dates: start: 2012, end: 201406

REACTIONS (3)
  - Anxiety [Unknown]
  - Nasopharyngitis [Unknown]
  - Asthma [Unknown]

NARRATIVE: CASE EVENT DATE: 2014
